FAERS Safety Report 21169811 (Version 1)
Quarter: 2022Q3

REPORT INFORMATION
  Report Type: Spontaneous
  Country: CA (occurrence: CA)
  Receive Date: 20220804
  Receipt Date: 20220804
  Transmission Date: 20221027
  Serious: Yes (Death, Other)
  Sender: FDA-Public Use
  Company Number: CA-BAXTER-2022BAX016524

PATIENT
  Age: 77 Year
  Sex: Male

DRUGS (1)
  1. CYCLOPHOSPHAMIDE [Suspect]
     Active Substance: CYCLOPHOSPHAMIDE
     Indication: Vasculitis
     Dosage: 100.0 MILLIGRAM, 1 EVERY 1 DAYS, DOSAGE FORM: NOT SPECIFIED
     Route: 048

REACTIONS (2)
  - Neutropenia [Fatal]
  - Septic shock [Fatal]
